FAERS Safety Report 20902487 (Version 1)
Quarter: 2022Q2

REPORT INFORMATION
  Report Type: Spontaneous
  Country: CN (occurrence: None)
  Receive Date: 20220601
  Receipt Date: 20220601
  Transmission Date: 20220720
  Serious: Yes (Other)
  Sender: FDA-Public Use
  Company Number: CN-ROCHE-3103371

PATIENT
  Age: 72 Year
  Sex: Male

DRUGS (8)
  1. TECENTRIQ [Suspect]
     Active Substance: ATEZOLIZUMAB
     Indication: Hepatic cancer
     Route: 065
     Dates: start: 20210124
  2. TECENTRIQ [Suspect]
     Active Substance: ATEZOLIZUMAB
     Indication: Tumour thrombosis
  3. AVASTIN [Suspect]
     Active Substance: BEVACIZUMAB
     Indication: Hepatic cancer
     Route: 065
     Dates: start: 20210124
  4. AVASTIN [Suspect]
     Active Substance: BEVACIZUMAB
     Indication: Tumour thrombosis
  5. OXALIPLATIN [Concomitant]
     Active Substance: OXALIPLATIN
     Indication: Hepatic cancer
     Dates: start: 20210122
  6. OXALIPLATIN [Concomitant]
     Active Substance: OXALIPLATIN
     Indication: Tumour thrombosis
  7. IODINE [Concomitant]
     Active Substance: IODINE
     Indication: Hepatic cancer
     Dates: start: 20210122
  8. IODINE [Concomitant]
     Active Substance: IODINE
     Indication: Tumour thrombosis

REACTIONS (6)
  - Abdominal distension [Unknown]
  - Ascites [Unknown]
  - Oedema peripheral [Unknown]
  - Blood albumin increased [Unknown]
  - Protein urine present [Unknown]
  - Proteinuria [Unknown]

NARRATIVE: CASE EVENT DATE: 20210901
